FAERS Safety Report 8484197-2 (Version None)
Quarter: 2012Q3

REPORT INFORMATION
  Report Type: 
  Country: None (occurrence: None)
  Receive Date: 20120703
  Receipt Date: 20120626
  Transmission Date: 20120928
  Serious: Yes (Hospitalization)
  Sender: FDA-Public Use
  Company Number: JP-SANOFI-AVENTIS-2012SA045669

PATIENT
  Age: 74 Year
  Sex: Male
  Weight: 48 kg

DRUGS (5)
  1. OXALIPLATIN [Suspect]
     Indication: COLON CANCER
     Dosage: DOSE: 79.5 MG/M2
     Route: 041
     Dates: start: 20110613, end: 20110613
  2. LEUCOVORIN CALCIUM [Concomitant]
     Dates: start: 20110613, end: 20110613
  3. FLUOROURACIL [Suspect]
     Indication: COLON CANCER
     Dosage: DOSE: 364.5 MG/M2
     Route: 040
     Dates: start: 20110613, end: 20110613
  4. FLUOROURACIL [Suspect]
     Route: 041
     Dates: start: 20110613, end: 20110613
  5. HALOPERIDOL [Concomitant]
     Dates: start: 20110614, end: 20110614

REACTIONS (3)
  - DEPRESSED LEVEL OF CONSCIOUSNESS [None]
  - CONVULSION [None]
  - ENCEPHALOPATHY [None]
